FAERS Safety Report 8916836 (Version 1)
Quarter: 2012Q4

REPORT INFORMATION
  Report Type: 
  Country: US (occurrence: US)
  Receive Date: 20121120
  Receipt Date: 20121120
  Transmission Date: 20130627
  Serious: No
  Sender: FDA-Public Use
  Company Number: US-PFIZER INC-2012287852

PATIENT
  Sex: Male

DRUGS (3)
  1. GABAPENTIN [Suspect]
     Indication: FIBROMYALGIA
     Dosage: UNK
     Dates: start: 2012
  2. PROZAC [Concomitant]
     Dosage: UNK
  3. FLEXERIL [Concomitant]
     Dosage: UNK

REACTIONS (2)
  - Pyrexia [Recovered/Resolved]
  - Aggression [Recovered/Resolved]
